FAERS Safety Report 25367125 (Version 1)
Quarter: 2025Q2

REPORT INFORMATION
  Report Type: Spontaneous
  Country: DE (occurrence: DE)
  Receive Date: 20250528
  Receipt Date: 20250528
  Transmission Date: 20250716
  Serious: Yes (Other)
  Sender: ACCORD
  Company Number: None

PATIENT
  Sex: Female

DRUGS (4)
  1. EZETIMIBE [Suspect]
     Active Substance: EZETIMIBE
     Indication: Hypercholesterolaemia
  2. ROSUVASTATIN [Suspect]
     Active Substance: ROSUVASTATIN
     Indication: Hypercholesterolaemia
  3. INCLISIRAN [Suspect]
     Active Substance: INCLISIRAN
     Indication: Blood cholesterol increased
     Dates: start: 202412
  4. INCLISIRAN [Suspect]
     Active Substance: INCLISIRAN
     Indication: Blood cholesterol increased
     Dates: start: 202503

REACTIONS (2)
  - Low density lipoprotein increased [Unknown]
  - Drug ineffective [Unknown]
